FAERS Safety Report 11824875 (Version 1)
Quarter: 2015Q4

REPORT INFORMATION
  Report Type: Spontaneous
  Country: FR (occurrence: FR)
  Receive Date: 20151210
  Receipt Date: 20151210
  Transmission Date: 20160305
  Serious: Yes (Hospitalization)
  Sender: FDA-Public Use
  Company Number: FR-BRISTOL-MYERS SQUIBB COMPANY-10670578

PATIENT
  Age: 0 Year
  Sex: Female
  Weight: 2.63 kg

DRUGS (10)
  1. ZERIT [Suspect]
     Active Substance: STAVUDINE
     Indication: PRODUCT USED FOR UNKNOWN INDICATION
     Dosage: 80 MG, QD
     Route: 064
     Dates: end: 19990105
  2. RETROVIR [Suspect]
     Active Substance: ZIDOVUDINE
     Dosage: THERAPY STARTED AT WEEK 16 OF GESTATION UNTIL DELIVERY
     Route: 064
     Dates: start: 19990311
  3. BACTRIM [Concomitant]
     Active Substance: SULFAMETHOXAZOLE\TRIMETHOPRIM
     Indication: PRODUCT USED FOR UNKNOWN INDICATION
     Dosage: UNK
     Route: 064
  4. SUSTIVA [Suspect]
     Active Substance: EFAVIRENZ
     Indication: PRODUCT USED FOR UNKNOWN INDICATION
     Dosage: 600 MG, QD
     Route: 064
     Dates: start: 19981103, end: 19990105
  5. SPASFON [Concomitant]
     Active Substance: PHLOROGLUCINOL
     Indication: PRODUCT USED FOR UNKNOWN INDICATION
     Dosage: UNK
     Route: 064
  6. RETROVIR [Suspect]
     Active Substance: ZIDOVUDINE
     Indication: PRODUCT USED FOR UNKNOWN INDICATION
     Dosage: UNK
     Route: 064
  7. VIRACEPT [Suspect]
     Active Substance: NELFINAVIR MESYLATE
     Indication: PRODUCT USED FOR UNKNOWN INDICATION
     Dosage: UNK
     Route: 064
  8. VIDEX [Suspect]
     Active Substance: DIDANOSINE
     Indication: PRODUCT USED FOR UNKNOWN INDICATION
     Dosage: 400 MG, QD
     Route: 064
     Dates: start: 19981006, end: 19990612
  9. RETROVIR [Suspect]
     Active Substance: ZIDOVUDINE
     Indication: ANTIRETROVIRAL THERAPY
     Dosage: UNK
     Route: 048
     Dates: start: 19990311
  10. VITAMINS + IRON [Concomitant]
     Indication: PRODUCT USED FOR UNKNOWN INDICATION
     Dosage: UNK
     Route: 064

REACTIONS (5)
  - Hyperkalaemia [Unknown]
  - Foetal exposure during pregnancy [Unknown]
  - Hypertriglyceridaemia [Unknown]
  - Blood creatine phosphokinase increased [Unknown]
  - Blood lactic acid increased [Recovered/Resolved with Sequelae]

NARRATIVE: CASE EVENT DATE: 19981101
